FAERS Safety Report 6337325-9 (Version None)
Quarter: 2009Q3

REPORT INFORMATION
  Report Type: 
  Country: None (occurrence: None)
  Receive Date: 20090828
  Receipt Date: 20090828
  Transmission Date: 20100115
  Serious: Yes (Other)
  Sender: FDA-Public Use
  Company Number: None

PATIENT
  Age: 37 Year
  Sex: Female
  Weight: 86.1834 kg

DRUGS (4)
  1. TYSABRI [Suspect]
     Indication: PROGRESSIVE MULTIPLE SCLEROSIS
     Dosage: 1 MONTHLY IV DRIP
     Route: 041
     Dates: start: 20080927, end: 20090101
  2. DILAUDID [Concomitant]
  3. VALIUM [Concomitant]
  4. PHENOBARBITAL [Concomitant]

REACTIONS (6)
  - BREAST INFECTION [None]
  - CLOSTRIDIAL INFECTION [None]
  - HEPATIC FAILURE [None]
  - IMMUNE SYSTEM DISORDER [None]
  - INFLUENZA LIKE ILLNESS [None]
  - STAPHYLOCOCCAL INFECTION [None]
